FAERS Safety Report 5474000-7 (Version None)
Quarter: 2007Q3

REPORT INFORMATION
  Report Type: 
  Country: None (occurrence: None)
  Receive Date: 20070830
  Receipt Date: 20070615
  Transmission Date: 20080115
  Serious: Yes (Other)
  Sender: FDA-Public Use
  Company Number: 242726

PATIENT
  Age: 15 Year
  Sex: Female
  Weight: 62 kg

DRUGS (6)
  1. XOLAIR [Suspect]
     Indication: ASTHMA
     Dosage: 225 MG, Q2W, SUBCUTANEOUS
     Route: 058
     Dates: start: 20070228
  2. ZOFRAN [Concomitant]
  3. ADVAIR DISKUS 100/50 [Concomitant]
  4. CLARINEX [Concomitant]
  5. FLONASE [Concomitant]
  6. MEDICATION (UNK INGREDIENT) (GENERIC COMPONENT(S) NOT KNOWN) [Concomitant]

REACTIONS (2)
  - HYPERSENSITIVITY [None]
  - TONGUE OEDEMA [None]
